FAERS Safety Report 13854846 (Version 2)
Quarter: 2017Q3

REPORT INFORMATION
  Report Type: Spontaneous
  Country: DE (occurrence: DE)
  Receive Date: 20170810
  Receipt Date: 20170822
  Transmission Date: 20171127
  Serious: Yes (Other)
  Sender: FDA-Public Use
  Company Number: DE-SUN PHARMACEUTICAL INDUSTRIES LTD-2017RR-147235

PATIENT
  Sex: Male
  Weight: 71 kg

DRUGS (1)
  1. TAMSULOSIN BASICS 0,4 MG HARTKAPSEL, RETARDIERT [Suspect]
     Active Substance: TAMSULOSIN
     Indication: PROSTATOMEGALY
     Dosage: DAILY DOSE: 0.4 MG MILLIGRAM(S) EVERY DAY
     Route: 048
     Dates: start: 201609

REACTIONS (3)
  - Road traffic accident [Unknown]
  - Impaired driving ability [Unknown]
  - Fatigue [Unknown]

NARRATIVE: CASE EVENT DATE: 20170513
